FAERS Safety Report 7995932-1 (Version None)
Quarter: 2011Q4

REPORT INFORMATION
  Report Type: 
  Country: None (occurrence: None)
  Receive Date: 20111220
  Receipt Date: 20111214
  Transmission Date: 20120403
  Serious: Yes (Other)
  Sender: FDA-Public Use
  Company Number: CA-ABBOTT-11P-028-0881022-00

PATIENT
  Sex: Female

DRUGS (4)
  1. CALCIUM + VITAMIN D [Concomitant]
     Indication: PRODUCT USED FOR UNKNOWN INDICATION
     Dates: start: 20111001
  2. HUMIRA [Suspect]
     Indication: CROHN'S DISEASE
     Route: 058
     Dates: start: 20110128, end: 20111101
  3. AZATHIOPRINE [Concomitant]
     Indication: PRODUCT USED FOR UNKNOWN INDICATION
     Dates: start: 20110501, end: 20110701
  4. FERROUS SULFATE TAB [Concomitant]
     Indication: PRODUCT USED FOR UNKNOWN INDICATION
     Dates: start: 20101001

REACTIONS (4)
  - COLITIS [None]
  - GASTROINTESTINAL CARCINOMA [None]
  - GASTROINTESTINAL DYSPLASIA [None]
  - DRUG INEFFECTIVE [None]
